FAERS Safety Report 7576134-X (Version None)
Quarter: 2011Q2

REPORT INFORMATION
  Report Type: 
  Country: None (occurrence: None)
  Receive Date: 20110628
  Receipt Date: 20110615
  Transmission Date: 20111010
  Serious: Yes (Other)
  Sender: FDA-Public Use
  Company Number: US-ELI_LILLY_AND_COMPANY-US201104004945

PATIENT
  Sex: Female

DRUGS (14)
  1. ACTONEL [Concomitant]
  2. CALCIUM +D3 [Concomitant]
     Dosage: UNK, TID
  3. LISINOPRIL [Concomitant]
     Dosage: 5 MG, QD
     Dates: start: 20110504
  4. GARLIC [Concomitant]
     Dosage: 1250 MG, QD
  5. SPIRIVA [Concomitant]
     Dosage: 18 UG, QD
  6. BIOTIN [Concomitant]
     Dosage: 5000 UG, QD
  7. HYDROCHLOROTHIAZIDE [Concomitant]
     Dosage: 12.5 MG, QD
  8. POTASSIUM GLUCONATE TAB [Concomitant]
     Dosage: 595 MG, QD
  9. ASCORBIC ACID [Concomitant]
     Dosage: 9000 MG, QD
  10. ADVAIR DISKUS 100/50 [Concomitant]
     Dosage: UNK, BID
  11. FORTEO [Suspect]
     Indication: OSTEOPOROSIS
     Dosage: 20 UG, QD
     Dates: start: 20110323
  12. FORTEO [Suspect]
     Dosage: 20 UG, QD
  13. SIMVASTATIN [Concomitant]
     Dosage: 40 MG, QD
  14. GUAIFENESIN [Concomitant]
     Dosage: 400 MG, BID

REACTIONS (4)
  - ABDOMINAL DISCOMFORT [None]
  - CARDIAC MURMUR [None]
  - NAUSEA [None]
  - DIZZINESS [None]
